FAERS Safety Report 4293907-X (Version None)
Quarter: 2004Q1

REPORT INFORMATION
  Report Type: 
  Country: None (occurrence: None)
  Receive Date: 20040211
  Receipt Date: 20040211
  Transmission Date: 20041129
  Serious: Yes (Life-Threatening)
  Sender: FDA-Public Use
  Company Number: None

PATIENT
  Age: 30 Year
  Sex: Female
  Weight: 120.2032 kg

DRUGS (2)
  1. AVELOX [Suspect]
     Indication: ASTHMA
     Dosage: 400 MG PO [1 DOSE]
     Route: 048
  2. AVELOX [Suspect]
     Indication: SINUSITIS
     Dosage: 400 MG PO [1 DOSE]
     Route: 048

REACTIONS (8)
  - BLOOD PRESSURE DECREASED [None]
  - CHEST DISCOMFORT [None]
  - DIZZINESS [None]
  - FLUSHING [None]
  - OEDEMA [None]
  - PARAESTHESIA [None]
  - PRURITUS [None]
  - URTICARIA [None]
